FAERS Safety Report 9096095 (Version 2)
Quarter: 2013Q2

REPORT INFORMATION
  Report Type: Spontaneous
  Country: GB (occurrence: GB)
  Receive Date: 20130207
  Receipt Date: 20130626
  Transmission Date: 20140414
  Serious: Yes (Disabling)
  Sender: FDA-Public Use
  Company Number: GB-PFIZER INC-2013048336

PATIENT
  Sex: Female

DRUGS (1)
  1. AMLODIPINE BESILATE [Suspect]
     Indication: HYPERTENSION
     Dosage: 5 MG, 1X/DAY
     Route: 048
     Dates: start: 20130108, end: 20130112

REACTIONS (5)
  - Tremor [Recovering/Resolving]
  - Asthenia [Recovering/Resolving]
  - Pollakiuria [Recovering/Resolving]
  - Feeling abnormal [Recovering/Resolving]
  - Disorientation [Recovering/Resolving]
